FAERS Safety Report 5022613-9 (Version None)
Quarter: 2006Q2

REPORT INFORMATION
  Report Type: 
  Country: None (occurrence: None)
  Receive Date: 20060605
  Receipt Date: 20060523
  Transmission Date: 20061013
  Serious: Yes (Hospitalization)
  Sender: FDA-Public Use
  Company Number: 2006067613

PATIENT
  Age: 61 Year
  Sex: Female

DRUGS (10)
  1. GLADEM (SERTRALINE) [Suspect]
     Indication: SOMATOFORM DISORDER
     Dosage: ORAL
     Route: 048
     Dates: start: 20060413, end: 20060420
  2. ALPRAZOLAM [Suspect]
     Indication: ILL-DEFINED DISORDER
     Dosage: ORAL
     Route: 048
  3. REMERON [Suspect]
     Indication: ILL-DEFINED DISORDER
     Dosage: ORAL
     Route: 048
     Dates: start: 20060420
  4. RESPICUR (THEOPHYLLINE) [Concomitant]
  5. SPIRIVA [Concomitant]
  6. CONCOR COR (BISOPROLOL) [Concomitant]
  7. PANTOPRAZOLE SODIUM [Concomitant]
  8. OXIS (FORMOTEROL) [Concomitant]
  9. PULMICORT [Concomitant]
  10. BERODUAL (FENOTEROL HYDROBROMIDE, IPRATROPIUM BROMIDE) [Concomitant]

REACTIONS (3)
  - INITIAL INSOMNIA [None]
  - MYALGIA [None]
  - SOMNOLENCE [None]
